FAERS Safety Report 9565054 (Version 1)
Quarter: 2013Q3

REPORT INFORMATION
  Report Type: Spontaneous
  Country: CH (occurrence: CH)
  Receive Date: 20130930
  Receipt Date: 20130930
  Transmission Date: 20140515
  Serious: Yes (Life-Threatening, Hospitalization)
  Sender: FDA-Public Use
  Company Number: CH-PFIZER INC-2013277683

PATIENT
  Age: 60 Year
  Sex: Male

DRUGS (4)
  1. LYRICA [Suspect]
     Dosage: UNKNOWN DOSE
     Route: 048
     Dates: start: 20130403, end: 20130410
  2. PANTOZOL [Concomitant]
     Dosage: 40 MG, 1X/DAY
     Route: 048
  3. VALTREX [Concomitant]
     Indication: HERPES ZOSTER
     Dosage: UNK
     Route: 048
     Dates: start: 20130403, end: 20130417
  4. VALTREX [Concomitant]
     Indication: PROPHYLAXIS
     Dosage: 1 G, 1X/DAY
     Route: 048
     Dates: start: 20130420, end: 20130424

REACTIONS (3)
  - Leukopenia [Recovered/Resolved]
  - Febrile neutropenia [Recovered/Resolved]
  - Abscess [Recovering/Resolving]
